FAERS Safety Report 4504026-9 (Version None)
Quarter: 2004Q4

REPORT INFORMATION
  Report Type: 
  Country: None (occurrence: None)
  Receive Date: 20041115
  Receipt Date: 20041101
  Transmission Date: 20050328
  Serious: Yes (Other)
  Sender: FDA-Public Use
  Company Number: 2004085936

PATIENT
  Sex: Female
  Weight: 58.9676 kg

DRUGS (7)
  1. VISINE A.C. (TETRYZOLINE, ZINC SULFATE) [Suspect]
     Indication: EYE ALLERGY
     Dosage: 1-3 DROPS OU 1-2X DAILY PRN, OPHTHALMIC
     Route: 047
  2. HYDROCHLOROTHIAZIDE [Concomitant]
  3. FINASTERIDE [Concomitant]
  4. AKLENDRONATE SODIUM (ALENDRONATE SODIUM) [Concomitant]
  5. VITAMIN NOS (VITAMINS NOS) [Concomitant]
  6. ACETAMINOPHEN [Concomitant]
  7. ANTIINFLAMMATORY/ANTIRHEUMATIC PRODUCTS (ANTIINFLAMMATORY/ANTIRHEUMATI [Concomitant]

REACTIONS (5)
  - APPLICATION SITE BURNING [None]
  - CATARACT [None]
  - GLAUCOMA [None]
  - LABORATORY TEST ABNORMAL [None]
  - RENAL IMPAIRMENT [None]
